FAERS Safety Report 7336098-0 (Version None)
Quarter: 2011Q1

REPORT INFORMATION
  Report Type: 
  Country: None (occurrence: None)
  Receive Date: 20110307
  Receipt Date: 20110225
  Transmission Date: 20110831
  Serious: Yes (Hospitalization)
  Sender: FDA-Public Use
  Company Number: US-ASTRAZENECA-2011SE09165

PATIENT
  Age: 73 Year
  Sex: Male

DRUGS (14)
  1. CASODEX [Suspect]
     Indication: PROSTATE CANCER
     Route: 048
     Dates: start: 20101227, end: 20110212
  2. LEXAPRO [Concomitant]
  3. POTASSIUM CHLORIDE [Concomitant]
  4. COREG [Concomitant]
  5. TAXOTERE [Suspect]
     Indication: PROSTATE CANCER
     Route: 042
  6. ADVAIR DISKUS 100/50 [Concomitant]
  7. AMIODARONE [Concomitant]
  8. LASIX [Concomitant]
  9. ASA [Concomitant]
  10. LUPRON [Suspect]
     Indication: PROSTATE CANCER
     Route: 030
     Dates: start: 20101229, end: 20110203
  11. RADIOTHERAPY [Suspect]
     Indication: PROSTATE CANCER
  12. LISINOPRIL [Concomitant]
  13. FLOMAX [Concomitant]
  14. ALBUTEROL SULFATE [Concomitant]

REACTIONS (7)
  - LOBAR PNEUMONIA [None]
  - HYPOXIA [None]
  - HYPOTENSION [None]
  - VOMITING [None]
  - NAUSEA [None]
  - DEHYDRATION [None]
  - DIARRHOEA [None]
